FAERS Safety Report 6500348-0 (Version None)
Quarter: 2009Q4

REPORT INFORMATION
  Report Type: 
  Country: None (occurrence: None)
  Receive Date: 20091216
  Receipt Date: 20091204
  Transmission Date: 20100525
  Serious: Yes (Other)
  Sender: FDA-Public Use
  Company Number: JP-ELI_LILLY_AND_COMPANY-JP200912002518

PATIENT
  Age: 90 Year
  Sex: Female

DRUGS (1)
  1. ZYPREXA [Suspect]
     Indication: DELIRIUM
     Dosage: 10 MG, DAILY (1/D)
     Route: 048
     Dates: end: 20091123

REACTIONS (2)
  - HYPERAMMONAEMIA [None]
  - OFF LABEL USE [None]
